FAERS Safety Report 6414456-6 (Version None)
Quarter: 2009Q4

REPORT INFORMATION
  Report Type: 
  Country: None (occurrence: None)
  Receive Date: 20091026
  Receipt Date: 20091019
  Transmission Date: 20100525
  Serious: Yes (Hospitalization, Other)
  Sender: FDA-Public Use
  Company Number: PHHY2008MX21353

PATIENT
  Sex: Female

DRUGS (2)
  1. ACLASTA [Suspect]
     Indication: OSTEOPOROSIS
     Dosage: 1 INJECTION (5 MG/100 ML) PER YEAR
     Route: 042
     Dates: start: 20070901
  2. NEXIUM [Concomitant]
     Indication: GASTRITIS
     Dosage: 1 DF, BID
     Dates: start: 20071101

REACTIONS (9)
  - BLOOD IRON DECREASED [None]
  - DIARRHOEA [None]
  - GALLBLADDER OPERATION [None]
  - GASTROENTERITIS [None]
  - HAEMATOCHEZIA [None]
  - IRON DEFICIENCY ANAEMIA [None]
  - PAIN [None]
  - PORCELAIN GALLBLADDER [None]
  - VOMITING [None]
